FAERS Safety Report 21120625 (Version 2)
Quarter: 2022Q3

REPORT INFORMATION
  Report Type: Other
  Country: CO (occurrence: CO)
  Receive Date: 20220722
  Receipt Date: 20220729
  Transmission Date: 20221027
  Serious: Yes (Other)
  Sender: FDA-Public Use
  Company Number: CO-BoehringerIngelheim-2022-BI-182039

PATIENT
  Age: 78 Year
  Sex: Male

DRUGS (2)
  1. ALTEPLASE [Suspect]
     Active Substance: ALTEPLASE
     Indication: Product used for unknown indication
     Route: 013
  2. ALTEPLASE [Suspect]
     Active Substance: ALTEPLASE
     Route: 065

REACTIONS (2)
  - Retinal artery occlusion [Recovering/Resolving]
  - Antiphospholipid syndrome [Unknown]
